FAERS Safety Report 17833453 (Version 1)
Quarter: 2020Q2

REPORT INFORMATION
  Report Type: Spontaneous
  Country: US (occurrence: US)
  Receive Date: 20200527
  Receipt Date: 20200527
  Transmission Date: 20200714
  Serious: Yes (Other)
  Sender: FDA-Public Use
  Company Number: None

PATIENT
  Age: 49 Year
  Sex: Male
  Weight: 69.2 kg

DRUGS (18)
  1. REMDESIVIR. [Suspect]
     Active Substance: REMDESIVIR
     Indication: COVID-19
     Dosage: ?          OTHER FREQUENCY:ONCE;?
     Route: 040
  2. FAMOTIDINE 20MG PO BID [Concomitant]
     Dates: start: 20200522, end: 20200526
  3. THIAMINE 100MG IV DAILY [Concomitant]
     Dates: start: 20200523, end: 20200526
  4. MORPHINE IV PRN [Concomitant]
     Dates: start: 20200523
  5. SODIUM CHLORIDE IV SOLUTION [Concomitant]
     Dates: start: 20200522
  6. ACETAMINOPHEN PRN [Concomitant]
     Dates: start: 20200522
  7. ASCORBIC ACID (VITAMIN C) 1000MG PO TID [Concomitant]
     Dates: start: 20200523
  8. BISACODYL SUPP DAILY PRN [Concomitant]
     Dates: start: 20200522
  9. MUPIROCIN 2% OINTMENT NASAL BID [Concomitant]
     Dates: start: 20200522, end: 20200524
  10. ALBUTEROL HFA MDI [Concomitant]
     Dates: start: 20200522
  11. GUAIFENESIN/CODEINE PRN COUGH [Concomitant]
     Dates: start: 20200523
  12. TUSSIONEX PO BID [Concomitant]
     Dates: start: 20200523
  13. CHLORHEXIDINE SWISH/SPIT BID [Concomitant]
     Dates: start: 20200522, end: 20200524
  14. ENOXAPARIN 40MG SUBQ Q12HR [Concomitant]
     Dates: start: 20200523
  15. SOLU-MEDROL 40MG IV Q12HR [Concomitant]
     Dates: start: 20200523, end: 20200527
  16. THIAMINE 100MG TABLET PO DAILY [Concomitant]
     Dates: start: 20200526
  17. ZINC SULFATE 220MG PO DAILY [Concomitant]
     Dates: start: 20200523
  18. REMDESIVIR. [Suspect]
     Active Substance: REMDESIVIR
     Indication: COVID-19
     Route: 040

REACTIONS (1)
  - Alanine aminotransferase increased [None]

NARRATIVE: CASE EVENT DATE: 20200526
